FAERS Safety Report 5722006-2 (Version None)
Quarter: 2008Q2

REPORT INFORMATION
  Report Type: 
  Country: None (occurrence: None)
  Receive Date: 20080429
  Receipt Date: 20080404
  Transmission Date: 20081010
  Serious: No
  Sender: FDA-Public Use
  Company Number: US-BOEHRINGER INGELHEIM GMBH, GERMANY-2005-BP-00709BP

PATIENT
  Age: 52 Year
  Sex: Male

DRUGS (3)
  1. FLOMAX [Suspect]
     Indication: BENIGN PROSTATIC HYPERPLASIA
     Route: 048
     Dates: start: 20040101, end: 20041201
  2. DARVOCET-N [Concomitant]
     Indication: PAIN
     Dosage: AS NEEDED
  3. STARLIX [Concomitant]
     Indication: DIABETES MELLITUS

REACTIONS (4)
  - BLOOD PRESSURE DECREASED [None]
  - ERECTILE DYSFUNCTION [None]
  - RETROGRADE EJACULATION [None]
  - URINARY RETENTION [None]
